FAERS Safety Report 14114873 (Version 1)
Quarter: 2017Q4

REPORT INFORMATION
  Report Type: Spontaneous
  Country: US (occurrence: US)
  Receive Date: 20171023
  Receipt Date: 20171023
  Transmission Date: 20180321
  Serious: Yes (Other)
  Sender: FDA-Public Use
  Company Number: US-GLAXOSMITHKLINE-US2017159945

PATIENT
  Sex: Female

DRUGS (6)
  1. DUONASE NASAL SPRAY [Concomitant]
  2. ADVAIR DISKUS [Suspect]
     Active Substance: FLUTICASONE PROPIONATE\SALMETEROL XINAFOATE
     Indication: ASTHMA
     Dosage: 1 PUFF(S), BID
     Route: 055
     Dates: start: 2002
  3. MOTRIN [Concomitant]
     Active Substance: IBUPROFEN
  4. ALLEGRA-D [Concomitant]
     Active Substance: FEXOFENADINE\PSEUDOEPHEDRINE
  5. ZOLOFT [Concomitant]
     Active Substance: SERTRALINE HYDROCHLORIDE
  6. CORTIZONE 10 [Concomitant]
     Active Substance: HYDROCORTISONE

REACTIONS (3)
  - Intentional underdose [Unknown]
  - Lower respiratory tract infection [Unknown]
  - Candida infection [Unknown]

NARRATIVE: CASE EVENT DATE: 2013
